FAERS Safety Report 8737667 (Version 2)
Quarter: 2012Q4

REPORT INFORMATION
  Report Type: Report from Study
  Country: JP (occurrence: JP)
  Receive Date: 20120822
  Receipt Date: 20120930
  Transmission Date: 20130627
  Serious: Yes (Other)
  Sender: FDA-Public Use
  Company Number: JP-009507513-1208JPN003817

PATIENT
  Age: 62 Year
  Sex: Female
  Weight: 61 kg

DRUGS (13)
  1. PEGINTRON [Suspect]
     Indication: HEPATITIS C
     Dosage: 1.5 Microgram per kilogram, UNK
     Route: 058
     Dates: start: 20120521, end: 20120604
  2. PEGINTRON [Suspect]
     Dosage: 0.7 Microgram per kilogram, qw
     Route: 058
     Dates: start: 20120611
  3. PEGINTRON [Suspect]
     Dosage: 0.8 Microgram per kilogram, UNK
  4. REBETOL [Suspect]
     Indication: HEPATITIS C
     Dosage: 600mg,qd
     Route: 048
     Dates: start: 20120521, end: 20120610
  5. REBETOL [Suspect]
     Dosage: 200 mg,qd
     Route: 048
     Dates: start: 20120611, end: 20120625
  6. REBETOL [Suspect]
     Dosage: 200 mg, qd
     Route: 048
     Dates: start: 20120702
  7. TELAVIC [Suspect]
     Indication: HEPATITIS C
     Dosage: 2250 mg,qd
     Route: 048
     Dates: start: 20120521, end: 20120610
  8. TELAVIC [Suspect]
     Dosage: 750 mg, qd
     Route: 048
     Dates: start: 20120611, end: 20120723
  9. TELAVIC [Suspect]
     Dosage: 1500 mg,qd
     Route: 048
     Dates: start: 20120724, end: 20120813
  10. DIOVAN [Concomitant]
     Indication: HYPERTENSION
     Route: 048
     Dates: end: 20120611
  11. ALLELOCK [Concomitant]
     Indication: DRUG ERUPTION
     Route: 048
     Dates: start: 20120524
  12. NAUZELIN [Concomitant]
     Indication: NAUSEA
     Dosage: 10mg/day, as needed.
     Route: 048
     Dates: start: 20120611, end: 20120617
  13. NOVAMIN (PROCHLORPERAZINE MALEATE) [Concomitant]
     Indication: NAUSEA
     Route: 048
     Dates: start: 20120618, end: 20120723

REACTIONS (3)
  - Hyperuricaemia [Recovered/Resolved]
  - Anaemia [Recovering/Resolving]
  - Renal impairment [Recovered/Resolved]
